FAERS Safety Report 7027656-1 (Version None)
Quarter: 2010Q4

REPORT INFORMATION
  Report Type: 
  Country: None (occurrence: None)
  Receive Date: 20101004
  Receipt Date: 20100927
  Transmission Date: 20110411
  Serious: Yes (Other)
  Sender: FDA-Public Use
  Company Number: US-AMGEN-KDL438717

PATIENT
  Sex: Female

DRUGS (3)
  1. ENBREL [Suspect]
     Indication: PSORIATIC ARTHROPATHY
     Route: 058
     Dates: start: 20001001
  2. METHOTREXATE [Concomitant]
     Dates: start: 20100909
  3. HUMIRA [Concomitant]

REACTIONS (2)
  - DRUG INEFFECTIVE [None]
  - IRITIS [None]
